FAERS Safety Report 9955247 (Version 1)
Quarter: 2014Q1

REPORT INFORMATION
  Report Type: Spontaneous
  Country: US (occurrence: US)
  Receive Date: 20140304
  Receipt Date: 20140304
  Transmission Date: 20141002
  Serious: Yes (Other)
  Sender: FDA-Public Use
  Company Number: PHHY2014US024361

PATIENT
  Age: 60 Year
  Sex: Male

DRUGS (3)
  1. 5-FLUOROURACIL [Suspect]
     Indication: OESOPHAGEAL ADENOCARCINOMA
  2. LEUCOVORIN CALCIUM [Suspect]
     Indication: OESOPHAGEAL ADENOCARCINOMA
  3. BEVACIZUMAB [Suspect]
     Indication: OESOPHAGEAL ADENOCARCINOMA

REACTIONS (1)
  - Pulmonary embolism [Unknown]
